FAERS Safety Report 7953676-6 (Version None)
Quarter: 2011Q4

REPORT INFORMATION
  Report Type: 
  Country: None (occurrence: None)
  Receive Date: 20111202
  Receipt Date: 20111122
  Transmission Date: 20120403
  Serious: Yes (Other)
  Sender: FDA-Public Use
  Company Number: US-JNJFOC-20111100584

PATIENT
  Sex: Female

DRUGS (4)
  1. REMICADE [Suspect]
     Indication: TAKAYASU'S ARTERITIS
     Route: 042
     Dates: start: 20110922
  2. PREDNISONE [Suspect]
     Indication: TAKAYASU'S ARTERITIS
     Route: 048
     Dates: start: 20110101, end: 20110831
  3. REMICADE [Suspect]
     Route: 042
     Dates: start: 20111012
  4. PREDNISONE [Suspect]
     Indication: VASCULITIS
     Route: 048
     Dates: start: 20110101, end: 20110831

REACTIONS (2)
  - SLEEP APNOEA SYNDROME [None]
  - HYPERTENSION [None]
